FAERS Safety Report 6811027-4 (Version None)
Quarter: 2010Q2

REPORT INFORMATION
  Report Type: 
  Country: None (occurrence: None)
  Receive Date: 20100630
  Receipt Date: 20090112
  Transmission Date: 20101027
  Serious: No
  Sender: FDA-Public Use
  Company Number: US-PFIZER INC-2008096391

PATIENT
  Sex: Female

DRUGS (3)
  1. ESTRING [Suspect]
     Indication: OFF LABEL USE
     Route: 067
     Dates: start: 20080801
  2. SEROQUEL [Concomitant]
  3. LAMICTAL [Concomitant]

REACTIONS (1)
  - DRUG INEFFECTIVE FOR UNAPPROVED INDICATION [None]
